FAERS Safety Report 4466824-X (Version None)
Quarter: 2004Q4

REPORT INFORMATION
  Report Type: 
  Country: None (occurrence: None)
  Receive Date: 20041006
  Receipt Date: 20040604
  Transmission Date: 20050328
  Serious: Yes (Other)
  Sender: FDA-Public Use
  Company Number: US-ROCHE-370296

PATIENT
  Age: 46 Year
  Sex: Female
  Weight: 75.3 kg

DRUGS (4)
  1. PEGASYS [Suspect]
     Indication: HEPATITIS C
     Route: 058
     Dates: start: 20030903, end: 20040802
  2. COPEGUS [Suspect]
     Indication: HEPATITIS C
     Route: 048
     Dates: start: 20030903, end: 20040305
  3. COPEGUS [Suspect]
     Route: 048
     Dates: start: 20040305, end: 20040604
  4. COPEGUS [Suspect]
     Route: 048
     Dates: start: 20040604, end: 20040802

REACTIONS (16)
  - ABDOMINAL DISTENSION [None]
  - ANAEMIA [None]
  - ARTHRITIS [None]
  - BACK PAIN [None]
  - BLOOD THYROID STIMULATING HORMONE ABNORMAL [None]
  - BLOOD THYROID STIMULATING HORMONE INCREASED [None]
  - DIZZINESS [None]
  - DYSPNOEA [None]
  - DYSPNOEA EXERTIONAL [None]
  - FATIGUE [None]
  - HEADACHE [None]
  - MENINGITIS [None]
  - PHARYNGOLARYNGEAL PAIN [None]
  - PLATELET COUNT DECREASED [None]
  - STOMACH DISCOMFORT [None]
  - WHITE BLOOD CELL COUNT DECREASED [None]
